FAERS Safety Report 7559889-X (Version None)
Quarter: 2011Q2

REPORT INFORMATION
  Report Type: 
  Country: None (occurrence: None)
  Receive Date: 20110617
  Receipt Date: 20110617
  Transmission Date: 20111010
  Serious: No
  Sender: FDA-Public Use
  Company Number: None

PATIENT
  Age: 60 Year
  Sex: Female
  Weight: 65.7716 kg

DRUGS (3)
  1. DOXYCYCLINE HYCLATE [Concomitant]
  2. LEVAQUIN [Suspect]
     Indication: PNEUMONIA
     Dosage: 5 1 X A DAY IV
     Route: 042
     Dates: start: 20110116, end: 20110120
  3. LEVAQUIN [Suspect]
     Indication: PNEUMONIA
     Dosage: 5 1 X  A DAY PO
     Route: 048
     Dates: start: 20110121, end: 20110125

REACTIONS (3)
  - MUSCULOSKELETAL PAIN [None]
  - ROTATOR CUFF SYNDROME [None]
  - JOINT INJURY [None]
